FAERS Safety Report 16419962 (Version 1)
Quarter: 2019Q2

REPORT INFORMATION
  Report Type: Spontaneous
  Country: IL (occurrence: IL)
  Receive Date: 20190612
  Receipt Date: 20190612
  Transmission Date: 20190711
  Serious: Yes (Hospitalization, Other)
  Sender: FDA-Public Use
  Company Number: IL-ASTRAZENECA-2019SE84262

PATIENT
  Age: 60 Year
  Sex: Female

DRUGS (8)
  1. AREDIA [Concomitant]
     Active Substance: PAMIDRONATE DISODIUM
     Indication: DISEASE PROGRESSION
     Dates: start: 201302
  2. FEMARA [Concomitant]
     Active Substance: LETROZOLE
     Indication: DISEASE PROGRESSION
     Dates: start: 201302
  3. RECLAST [Concomitant]
     Active Substance: ZOLEDRONIC ACID
     Route: 048
     Dates: start: 201302, end: 201305
  4. FASLODEX [Suspect]
     Active Substance: FULVESTRANT
     Indication: DISEASE PROGRESSION
     Route: 030
     Dates: start: 201302
  5. AFINITOR [Concomitant]
     Active Substance: EVEROLIMUS
     Dates: start: 201302
  6. AROMASIN [Concomitant]
     Active Substance: EXEMESTANE
     Indication: HORMONE THERAPY
     Dates: start: 201302
  7. AFINITOR [Concomitant]
     Active Substance: EVEROLIMUS
     Dates: start: 201305
  8. TAMOXIFEN [Concomitant]
     Active Substance: TAMOXIFEN
     Indication: DISEASE PROGRESSION
     Dates: start: 201302

REACTIONS (4)
  - Blood creatinine increased [Unknown]
  - Mouth ulceration [Unknown]
  - Blood urea increased [Unknown]
  - Malignant neoplasm progression [Unknown]

NARRATIVE: CASE EVENT DATE: 201302
